FAERS Safety Report 8963972 (Version 1)
Quarter: 2012Q4

REPORT INFORMATION
  Report Type: Report from Study
  Country: DE (occurrence: DE)
  Receive Date: 20121214
  Receipt Date: 20121214
  Transmission Date: 20130627
  Serious: Yes (Life-Threatening, Hospitalization, Disabling, Other)
  Sender: FDA-Public Use
  Company Number: DE-SANOFI-AVENTIS-2012SA090378

PATIENT
  Age: 69 Year
  Sex: Male
  Weight: 68.9 kg

DRUGS (118)
  1. MYCOPHENOLATE MOFETIL [Suspect]
     Indication: PROPHYLAXIS AGAINST RENAL TRANSPLANT REJECTION
     Route: 048
     Dates: start: 20030709, end: 20030715
  2. MYCOPHENOLATE MOFETIL [Suspect]
     Indication: PROPHYLAXIS AGAINST RENAL TRANSPLANT REJECTION
     Route: 048
     Dates: end: 20031114
  3. MYCOPHENOLATE MOFETIL [Suspect]
     Indication: PROPHYLAXIS AGAINST RENAL TRANSPLANT REJECTION
     Route: 048
     Dates: start: 20030716
  4. MYCOPHENOLATE MOFETIL [Suspect]
     Indication: PROPHYLAXIS AGAINST RENAL TRANSPLANT REJECTION
     Route: 048
     Dates: start: 20031119, end: 20031126
  5. MYCOPHENOLATE MOFETIL [Suspect]
     Indication: PROPHYLAXIS AGAINST RENAL TRANSPLANT REJECTION
     Route: 048
     Dates: start: 20030719
  6. MYCOPHENOLATE MOFETIL [Suspect]
     Indication: PROPHYLAXIS AGAINST RENAL TRANSPLANT REJECTION
     Route: 048
     Dates: start: 20030731, end: 20030801
  7. MYCOPHENOLATE MOFETIL [Suspect]
     Indication: PROPHYLAXIS AGAINST RENAL TRANSPLANT REJECTION
     Route: 048
     Dates: start: 20030807
  8. MYCOPHENOLATE MOFETIL [Suspect]
     Indication: PROPHYLAXIS AGAINST RENAL TRANSPLANT REJECTION
     Route: 048
     Dates: start: 20030808
  9. MYCOPHENOLATE MOFETIL [Suspect]
     Indication: PROPHYLAXIS AGAINST RENAL TRANSPLANT REJECTION
     Route: 048
     Dates: start: 20030823
  10. MYCOPHENOLATE MOFETIL [Suspect]
     Indication: PROPHYLAXIS AGAINST RENAL TRANSPLANT REJECTION
     Route: 048
     Dates: start: 20030825, end: 20030902
  11. MYCOPHENOLATE MOFETIL [Suspect]
     Indication: PROPHYLAXIS AGAINST RENAL TRANSPLANT REJECTION
     Route: 048
     Dates: start: 20030908, end: 20031114
  12. MYCOPHENOLATE MOFETIL [Suspect]
     Indication: PROPHYLAXIS AGAINST RENAL TRANSPLANT REJECTION
     Route: 048
     Dates: start: 20031127
  13. MYCOPHENOLATE MOFETIL [Suspect]
     Indication: PROPHYLAXIS AGAINST RENAL TRANSPLANT REJECTION
     Route: 048
     Dates: start: 20031220, end: 20040325
  14. MYCOPHENOLATE MOFETIL [Suspect]
     Indication: PROPHYLAXIS AGAINST RENAL TRANSPLANT REJECTION
     Route: 048
     Dates: start: 20040402, end: 20040507
  15. MYCOPHENOLATE MOFETIL [Suspect]
     Indication: PROPHYLAXIS AGAINST RENAL TRANSPLANT REJECTION
     Route: 048
     Dates: start: 20040527
  16. CLOPIDOGREL BISULFATE [Suspect]
     Indication: PROPHYLAXIS AGAINST RENAL TRANSPLANT REJECTION
     Route: 048
     Dates: start: 20030712, end: 20030716
  17. PREDNISOLONE [Suspect]
     Indication: PROPHYLAXIS AGAINST RENAL TRANSPLANT REJECTION
     Route: 048
     Dates: start: 20030710, end: 20030710
  18. PREDNISOLONE [Suspect]
     Indication: PROPHYLAXIS AGAINST RENAL TRANSPLANT REJECTION
     Route: 048
     Dates: start: 20030711
  19. PREDNISOLONE [Suspect]
     Indication: PROPHYLAXIS AGAINST RENAL TRANSPLANT REJECTION
     Route: 048
     Dates: start: 20031230
  20. PREDNISOLONE [Suspect]
     Indication: PROPHYLAXIS AGAINST RENAL TRANSPLANT REJECTION
     Route: 048
     Dates: start: 20040605
  21. PREDNISOLONE [Suspect]
     Indication: PROPHYLAXIS AGAINST RENAL TRANSPLANT REJECTION
     Route: 042
     Dates: start: 20030709
  22. PREDNISOLONE [Suspect]
     Indication: PROPHYLAXIS AGAINST RENAL TRANSPLANT REJECTION
     Route: 042
     Dates: start: 20030710
  23. PREDNISONE [Suspect]
     Indication: PROPHYLAXIS AGAINST RENAL TRANSPLANT REJECTION
     Route: 048
     Dates: start: 20030715
  24. PREDNISONE [Suspect]
     Indication: PROPHYLAXIS AGAINST RENAL TRANSPLANT REJECTION
     Route: 048
     Dates: start: 20030717
  25. PREDNISONE [Suspect]
     Indication: PROPHYLAXIS AGAINST RENAL TRANSPLANT REJECTION
     Route: 048
     Dates: start: 20030724
  26. PREDNISONE [Suspect]
     Indication: PROPHYLAXIS AGAINST RENAL TRANSPLANT REJECTION
     Route: 048
     Dates: start: 20030731
  27. PREDNISONE [Suspect]
     Indication: PROPHYLAXIS AGAINST RENAL TRANSPLANT REJECTION
     Route: 048
     Dates: start: 20030819
  28. PREDNISONE [Suspect]
     Indication: PROPHYLAXIS AGAINST RENAL TRANSPLANT REJECTION
     Route: 048
     Dates: start: 20030821
  29. PREDNISONE [Suspect]
     Indication: PROPHYLAXIS AGAINST RENAL TRANSPLANT REJECTION
     Route: 048
     Dates: start: 20030824
  30. PREDNISONE [Suspect]
     Indication: PROPHYLAXIS AGAINST RENAL TRANSPLANT REJECTION
     Route: 048
     Dates: start: 20030827
  31. PREDNISONE [Suspect]
     Indication: PROPHYLAXIS AGAINST RENAL TRANSPLANT REJECTION
     Route: 048
     Dates: start: 20030830
  32. PREDNISONE [Suspect]
     Indication: PROPHYLAXIS AGAINST RENAL TRANSPLANT REJECTION
     Route: 048
     Dates: start: 20030906
  33. PREDNISONE [Suspect]
     Indication: PROPHYLAXIS AGAINST RENAL TRANSPLANT REJECTION
     Route: 048
     Dates: start: 20030930
  34. PREDNISONE [Suspect]
     Indication: PROPHYLAXIS AGAINST RENAL TRANSPLANT REJECTION
     Route: 048
     Dates: start: 20031028
  35. PREDNISONE [Suspect]
     Indication: PROPHYLAXIS AGAINST RENAL TRANSPLANT REJECTION
     Route: 048
     Dates: start: 20031125
  36. PREDNISONE [Suspect]
     Indication: PROPHYLAXIS AGAINST RENAL TRANSPLANT REJECTION
     Route: 048
     Dates: start: 20031230
  37. PREDNISONE [Suspect]
     Indication: PROPHYLAXIS AGAINST RENAL TRANSPLANT REJECTION
     Route: 048
     Dates: start: 20040605
  38. PREDNISONE [Suspect]
     Indication: PROPHYLAXIS AGAINST RENAL TRANSPLANT REJECTION
     Route: 048
     Dates: start: 20030710
  39. PREDNISONE [Suspect]
     Indication: PROPHYLAXIS AGAINST RENAL TRANSPLANT REJECTION
     Route: 048
     Dates: start: 20030711
  40. PREDNISONE [Suspect]
     Indication: PROPHYLAXIS AGAINST RENAL TRANSPLANT REJECTION
     Route: 048
     Dates: start: 20030713
  41. DACLIZUMAB [Suspect]
     Indication: PROPHYLAXIS AGAINST RENAL TRANSPLANT REJECTION
     Route: 042
     Dates: start: 20030709, end: 20030709
  42. DACLIZUMAB [Suspect]
     Indication: PROPHYLAXIS AGAINST RENAL TRANSPLANT REJECTION
     Route: 042
     Dates: start: 20030723
  43. DACLIZUMAB [Suspect]
     Indication: PROPHYLAXIS AGAINST RENAL TRANSPLANT REJECTION
     Route: 042
     Dates: start: 20030806
  44. DACLIZUMAB [Suspect]
     Indication: PROPHYLAXIS AGAINST RENAL TRANSPLANT REJECTION
     Route: 042
     Dates: start: 20030820
  45. DACLIZUMAB [Suspect]
     Indication: PROPHYLAXIS AGAINST RENAL TRANSPLANT REJECTION
     Route: 042
     Dates: start: 20030903
  46. SIROLIMUS [Suspect]
     Indication: PROPHYLAXIS AGAINST RENAL TRANSPLANT REJECTION
     Route: 048
     Dates: start: 20030709, end: 20030801
  47. SIROLIMUS [Suspect]
     Indication: PROPHYLAXIS AGAINST RENAL TRANSPLANT REJECTION
     Route: 048
     Dates: start: 20030804
  48. SIROLIMUS [Suspect]
     Indication: PROPHYLAXIS AGAINST RENAL TRANSPLANT REJECTION
     Route: 048
     Dates: start: 20030808
  49. SIROLIMUS [Suspect]
     Indication: PROPHYLAXIS AGAINST RENAL TRANSPLANT REJECTION
     Route: 048
     Dates: start: 20030810, end: 20030814
  50. SIROLIMUS [Suspect]
     Indication: PROPHYLAXIS AGAINST RENAL TRANSPLANT REJECTION
     Route: 048
     Dates: end: 20030817
  51. SIROLIMUS [Suspect]
     Indication: PROPHYLAXIS AGAINST RENAL TRANSPLANT REJECTION
     Route: 048
     Dates: start: 20030818, end: 20031011
  52. SIROLIMUS [Suspect]
     Indication: PROPHYLAXIS AGAINST RENAL TRANSPLANT REJECTION
     Route: 048
     Dates: start: 20031013, end: 20040331
  53. PREDNISOLONE SODIUM SUCCINATE [Suspect]
     Indication: PROPHYLAXIS AGAINST RENAL TRANSPLANT REJECTION
     Route: 042
     Dates: start: 20030709, end: 20030709
  54. PREDNISOLONE SODIUM SUCCINATE [Suspect]
     Indication: PROPHYLAXIS AGAINST RENAL TRANSPLANT REJECTION
     Route: 042
     Dates: start: 20030710, end: 20030710
  55. ACETYLSALICYLIC ACID [Suspect]
     Indication: PROPHYLAXIS AGAINST RENAL TRANSPLANT REJECTION
     Route: 048
     Dates: end: 20030715
  56. TACROLIMUS [Suspect]
     Indication: PROPHYLAXIS AGAINST RENAL TRANSPLANT REJECTION
     Route: 048
     Dates: start: 20040402
  57. TACROLIMUS [Suspect]
     Indication: PROPHYLAXIS AGAINST RENAL TRANSPLANT REJECTION
     Route: 048
     Dates: start: 20040824
  58. TACROLIMUS [Suspect]
     Indication: PROPHYLAXIS AGAINST RENAL TRANSPLANT REJECTION
     Route: 048
     Dates: start: 20050830
  59. TACROLIMUS [Suspect]
     Indication: PROPHYLAXIS AGAINST RENAL TRANSPLANT REJECTION
     Route: 048
     Dates: start: 20060109
  60. RISPERIDONE [Concomitant]
     Route: 042
  61. MAGNESIUM ASPARTATE HYDROCHLORIDE [Concomitant]
     Route: 042
  62. UNACID [Concomitant]
     Route: 048
     Dates: start: 20030710, end: 20030715
  63. UNACID [Concomitant]
     Route: 048
     Dates: start: 20030718, end: 20030801
  64. UNACID [Concomitant]
     Route: 048
     Dates: start: 20031117, end: 20031126
  65. KEPINOL [Concomitant]
     Route: 048
     Dates: start: 20030710
  66. AMLODIPINE BESILATE [Concomitant]
     Route: 048
     Dates: start: 20030711, end: 20030920
  67. AMLODIPINE BESILATE [Concomitant]
     Route: 048
     Dates: start: 20031127
  68. AMLODIPINE BESILATE [Concomitant]
     Route: 048
     Dates: start: 20040712
  69. AMPHO-MORONAL [Concomitant]
     Dosage: dose: Pipette
     Route: 048
  70. DILATREND [Concomitant]
     Route: 048
     Dates: start: 20030712
  71. DILATREND [Concomitant]
     Route: 048
     Dates: start: 20030919
  72. DILATREND [Concomitant]
     Route: 048
     Dates: start: 20040326
  73. DILATREND [Concomitant]
     Route: 048
     Dates: start: 20040712
  74. PRAVASIN [Concomitant]
     Route: 048
     Dates: start: 20030712, end: 20030823
  75. PRAVASIN [Concomitant]
     Route: 048
     Dates: start: 20030930, end: 20041212
  76. TRANXILIUM [Concomitant]
     Route: 048
  77. LACTULOSE [Concomitant]
     Route: 048
     Dates: end: 20031113
  78. MAALOXAN [Concomitant]
     Dates: start: 20030715, end: 20030715
  79. CORDAREX [Concomitant]
     Route: 048
     Dates: start: 20030712, end: 20030713
  80. CORDAREX [Concomitant]
     Route: 048
     Dates: start: 20030718, end: 20030921
  81. PERLINGANIT [Concomitant]
     Route: 042
     Dates: start: 20030712, end: 20030716
  82. EBRANTIL [Concomitant]
  83. HUMAN ACTRAPHANE [Concomitant]
  84. CORVATON [Concomitant]
     Route: 048
     Dates: start: 20030717, end: 20030920
  85. ISOKET RETARD [Concomitant]
     Route: 048
     Dates: start: 20030717, end: 20030921
  86. TROSPIUM CHLORIDE [Concomitant]
     Route: 048
     Dates: end: 20030805
  87. ACC [Concomitant]
     Route: 048
     Dates: start: 20030801, end: 20030812
  88. SALVIATHYMOL [Concomitant]
     Route: 061
     Dates: start: 20030802, end: 20030911
  89. RANITIDINE [Concomitant]
     Route: 042
     Dates: end: 20030806
  90. PROCRIT [Concomitant]
     Route: 058
     Dates: start: 20030726
  91. PROCRIT [Concomitant]
     Route: 058
     Dates: start: 20030805, end: 20030812
  92. ACTONEL [Concomitant]
     Route: 048
     Dates: end: 20031113
  93. ROCALTROL [Concomitant]
     Route: 048
  94. CIPROFLOXACIN [Concomitant]
     Route: 048
     Dates: end: 20031114
  95. ALNA [Concomitant]
     Route: 048
  96. ARANESP [Concomitant]
     Route: 058
     Dates: start: 20030813, end: 20040325
  97. INSULIN [Concomitant]
     Route: 058
     Dates: start: 20030711
  98. LOCOL [Concomitant]
     Route: 048
     Dates: start: 20031213
  99. LOCOL [Concomitant]
     Route: 048
     Dates: start: 20040712
  100. ACETYLCYSTEINE [Concomitant]
     Route: 048
     Dates: start: 20040325
  101. ATROVENT [Concomitant]
     Dates: start: 20030809, end: 20030910
  102. AMLODIPINE [Concomitant]
     Dates: start: 20030709, end: 20030710
  103. CEFOTIAM [Concomitant]
     Route: 042
     Dates: start: 20030821, end: 20030826
  104. CEFUROXIME [Concomitant]
     Route: 048
     Dates: start: 20030826, end: 20030829
  105. CIPROFLOXACIN [Concomitant]
     Route: 048
     Dates: start: 20030909, end: 20031115
  106. CLONIDINE [Concomitant]
     Route: 048
     Dates: end: 20030714
  107. DOXAZOSIN [Concomitant]
     Route: 048
     Dates: start: 20040712
  108. ENAHEXAL [Concomitant]
     Route: 048
     Dates: start: 20040712
  109. FERRO-SANOL DUODENAL [Concomitant]
     Route: 048
     Dates: start: 20031021, end: 20040324
  110. FUROSEMIDE [Concomitant]
     Route: 048
     Dates: start: 20030712, end: 20030715
  111. FUROSEMIDE [Concomitant]
     Route: 048
     Dates: start: 20030812, end: 20030823
  112. HEXETIDINE [Concomitant]
     Route: 061
     Dates: start: 20030724, end: 20030803
  113. METOPROLOL [Concomitant]
     Route: 048
     Dates: start: 20030709, end: 20030712
  114. SULTANOL [Concomitant]
     Dates: end: 20030814
  115. SULTANOL [Concomitant]
     Dates: start: 20030908
  116. URAPIDIL [Concomitant]
     Route: 042
     Dates: start: 20030714, end: 20030718
  117. CORDAREX [Concomitant]
     Route: 042
     Dates: start: 20030714, end: 20030717
  118. UNACID [Concomitant]
     Route: 042
     Dates: start: 20030716, end: 20030717

REACTIONS (14)
  - Abdominal hernia [Recovered/Resolved]
  - Lymphocele [Recovered/Resolved]
  - Acute coronary syndrome [Recovered/Resolved]
  - Myocardial infarction [Recovered/Resolved]
  - Acute abdomen [Recovered/Resolved]
  - Ureteric stenosis [Recovered/Resolved]
  - Suture rupture [Recovered/Resolved]
  - Intestinal prolapse [Recovered/Resolved]
  - Infection in an immunocompromised host [Recovered/Resolved]
  - Gastrointestinal haemorrhage [Recovered/Resolved]
  - Pneumonia [Recovered/Resolved]
  - Escherichia urinary tract infection [Recovered/Resolved]
  - Blood creatinine increased [Recovered/Resolved]
  - Diverticulitis [Recovered/Resolved]
